FAERS Safety Report 23481544 (Version 1)
Quarter: 2024Q1

REPORT INFORMATION
  Report Type: Spontaneous
  Country: US (occurrence: None)
  Receive Date: 20240202
  Receipt Date: 20240202
  Transmission Date: 20240409
  Serious: No
  Sender: FDA-Public Use
  Company Number: None

PATIENT
  Age: 32 Year
  Sex: Female
  Weight: 99 kg

DRUGS (8)
  1. XOLAIR [Suspect]
     Active Substance: OMALIZUMAB
     Indication: Idiopathic urticaria
     Dates: start: 20231020, end: 20240201
  2. SINGULAIR [Concomitant]
     Active Substance: MONTELUKAST SODIUM
  3. FAMOTIDINE [Concomitant]
     Active Substance: FAMOTIDINE
  4. ALLEGRA [Concomitant]
     Active Substance: FEXOFENADINE HYDROCHLORIDE
  5. VITAMIN D [Concomitant]
     Active Substance: VITAMIN D NOS
  6. VITAMINS [Concomitant]
     Active Substance: VITAMINS
  7. IRON [Concomitant]
     Active Substance: IRON
  8. aller pro [Concomitant]

REACTIONS (9)
  - Dizziness [None]
  - Dizziness [None]
  - Paraesthesia [None]
  - Lip swelling [None]
  - Swollen tongue [None]
  - Headache [None]
  - Arthralgia [None]
  - Pyrexia [None]
  - Nausea [None]

NARRATIVE: CASE EVENT DATE: 20240201
